FAERS Safety Report 15758536 (Version 1)
Quarter: 2018Q4

REPORT INFORMATION
  Report Type: Report from Study
  Country: BR (occurrence: BR)
  Receive Date: 20181225
  Receipt Date: 20181225
  Transmission Date: 20190205
  Serious: Yes (Other)
  Sender: FDA-Public Use
  Company Number: PHHY2018BR193829

PATIENT
  Sex: Female

DRUGS (2)
  1. EXELON [Suspect]
     Active Substance: RIVASTIGMINE TARTRATE
     Indication: PRODUCT USED FOR UNKNOWN INDICATION
     Dosage: UNK
     Route: 065
  2. EXELON PATCH [Suspect]
     Active Substance: RIVASTIGMINE
     Indication: MEMORY IMPAIRMENT
     Dosage: 13.3 MG, QD PATCH 15 (CM2)
     Route: 062

REACTIONS (7)
  - Dementia Alzheimer^s type [Unknown]
  - Application site bruise [Unknown]
  - Speech disorder [Unknown]
  - Mobility decreased [Unknown]
  - Vomiting [Unknown]
  - Nausea [Unknown]
  - Application site pruritus [Unknown]
